FAERS Safety Report 4690091-5 (Version None)
Quarter: 2005Q2

REPORT INFORMATION
  Report Type: 
  Country: None (occurrence: None)
  Receive Date: 20050614
  Receipt Date: 20050610
  Transmission Date: 20051028
  Serious: Yes (Hospitalization, Other)
  Sender: FDA-Public Use
  Company Number: FRWYE722307JUN05

PATIENT
  Age: 64 Year
  Sex: Female

DRUGS (9)
  1. TAZOCILLINE (PIPERACILLIN/ TAZOBACTAM, INJECTION) [Suspect]
     Indication: LIGHT CHAIN DISEASE
     Dosage: INTRAVENOUS
     Route: 042
     Dates: start: 20050316, end: 20050317
  2. ADRIAMYCIN PFS [Suspect]
     Indication: MULTIPLE MYELOMA
     Dosage: INTRAVENOUS
     Route: 042
     Dates: start: 20050311, end: 20050314
  3. CIPROFLAXACIN [Suspect]
     Indication: LIGHT CHAIN DISEASE
     Dosage: INTRAVENOUS
     Route: 042
     Dates: start: 20050316, end: 20050317
  4. DEXAMETHASONE [Suspect]
     Indication: MULTIPLE MYELOMA
     Dosage: INTRAVENOUS
     Route: 042
     Dates: start: 20050311, end: 20050314
  5. VINCRISTINE [Suspect]
     Indication: MULTIPLE MYELOMA
     Dosage: INTRAVENOUS
     Route: 042
     Dates: start: 20050311, end: 20050314
  6. VELCADE [Concomitant]
  7. OMEPRAZOLE [Concomitant]
  8. ACTRAPID MC (INSULIN) [Concomitant]
  9. LOVENOX [Concomitant]

REACTIONS (1)
  - PANCREATITIS ACUTE [None]
